FAERS Safety Report 19118412 (Version 2)
Quarter: 2021Q2

REPORT INFORMATION
  Report Type: Spontaneous
  Country: IE (occurrence: IE)
  Receive Date: 20210409
  Receipt Date: 20210517
  Transmission Date: 20210717
  Serious: Yes (Other)
  Sender: FDA-Public Use
  Company Number: IE-ORGANON-O2104IRL000600

PATIENT
  Sex: Female

DRUGS (1)
  1. IMPLANON NXT [Suspect]
     Active Substance: ETONOGESTREL
     Dosage: 1 IMPLANT, INCORRECT (DOMINANT) ARM
     Route: 059

REACTIONS (15)
  - Surgery [Unknown]
  - Mood swings [Unknown]
  - Abortion spontaneous [Recovered/Resolved]
  - Dandruff [Unknown]
  - Device issue [Recovered/Resolved]
  - Skin discolouration [Unknown]
  - Alopecia [Unknown]
  - Heavy menstrual bleeding [Unknown]
  - Abdominal distension [Unknown]
  - Complication associated with device [Recovered/Resolved]
  - Nerve injury [Unknown]
  - Scar [Unknown]
  - Pain [Unknown]
  - Acne [Unknown]
  - Device placement issue [Recovered/Resolved]
